FAERS Safety Report 13845097 (Version 1)
Quarter: 2017Q3

REPORT INFORMATION
  Report Type: Spontaneous
  Country: DE (occurrence: DE)
  Receive Date: 20170808
  Receipt Date: 20170808
  Transmission Date: 20171127
  Serious: Yes (Hospitalization)
  Sender: FDA-Public Use
  Company Number: PHHY2017DE115273

PATIENT
  Sex: Male

DRUGS (1)
  1. CERTICAN [Suspect]
     Active Substance: EVEROLIMUS
     Indication: HEART TRANSPLANT
     Dosage: 0.25MG/0.75MG/1.0MG, QD
     Route: 065

REACTIONS (5)
  - Inflammation [Unknown]
  - Renal failure [Unknown]
  - Hyperuricaemia [Unknown]
  - Gout [Unknown]
  - Joint swelling [Unknown]
